FAERS Safety Report 22085015 (Version 3)
Quarter: 2023Q2

REPORT INFORMATION
  Report Type: Spontaneous
  Country: RO (occurrence: RO)
  Receive Date: 20230310
  Receipt Date: 20230412
  Transmission Date: 20230722
  Serious: No
  Sender: FDA-Public Use
  Company Number: RO-AMGEN-ROUSP2023030925

PATIENT
  Age: 60 Year
  Sex: Female

DRUGS (3)
  1. BEVACIZUMAB [Suspect]
     Active Substance: BEVACIZUMAB
     Indication: Glioblastoma
     Dosage: 15 MG/KG, EVERY 3 WEEKS (15 MILLIGRAM/KG, Q3WK) (DOSAGE1: UNIT=NOT AVAILABLE)
     Route: 065
  2. BEVACIZUMAB [Suspect]
     Active Substance: BEVACIZUMAB
     Indication: Astrocytoma
  3. CARBOPLATIN [Concomitant]
     Active Substance: CARBOPLATIN
     Indication: Glioblastoma
     Dosage: UNK
     Route: 065

REACTIONS (1)
  - Off label use [Unknown]
